FAERS Safety Report 5833226-0 (Version None)
Quarter: 2008Q3

REPORT INFORMATION
  Report Type: 
  Country: None (occurrence: None)
  Receive Date: 20080801
  Receipt Date: 20080718
  Transmission Date: 20090109
  Serious: Yes (Death)
  Sender: FDA-Public Use
  Company Number: 15152

PATIENT
  Age: 32 Year
  Sex: Female
  Weight: 102.0593 kg

DRUGS (3)
  1. MORPHINE SULFATE [Suspect]
     Indication: ARTHRALGIA
     Dosage: ORALLY
     Route: 048
  2. MORPHINE SULFATE [Suspect]
     Indication: CYSTITIS
     Dosage: ORALLY
     Route: 048
  3. SOMA [Concomitant]

REACTIONS (1)
  - PHARMACEUTICAL PRODUCT COMPLAINT [None]
